FAERS Safety Report 13269466 (Version 1)
Quarter: 2017Q1

REPORT INFORMATION
  Report Type: Report from Study
  Country: CO (occurrence: CO)
  Receive Date: 20170224
  Receipt Date: 20170224
  Transmission Date: 20170428
  Serious: Yes (Other)
  Sender: FDA-Public Use
  Company Number: CO-AMGEN-COLSL2017028071

PATIENT
  Age: 68 Year
  Sex: Female

DRUGS (1)
  1. MIMPARA [Suspect]
     Active Substance: CINACALCET HYDROCHLORIDE
     Indication: HYPERPARATHYROIDISM SECONDARY
     Dosage: 30 MG, QD
     Route: 048
     Dates: start: 20160923

REACTIONS (10)
  - Dysarthria [Recovered/Resolved]
  - Facial paralysis [Recovering/Resolving]
  - Presyncope [Not Recovered/Not Resolved]
  - Lacrimation increased [Recovered/Resolved]
  - Abdominal pain upper [Recovered/Resolved]
  - Hypoaesthesia [Recovering/Resolving]
  - Deafness bilateral [Recovered/Resolved]
  - Ear discomfort [Not Recovered/Not Resolved]
  - Eye pain [Recovering/Resolving]
  - Dehydration [Recovered/Resolved]

NARRATIVE: CASE EVENT DATE: 20160923
